FAERS Safety Report 10733957 (Version 1)
Quarter: 2015Q1

REPORT INFORMATION
  Report Type: Spontaneous
  Country: US (occurrence: US)
  Receive Date: 20150123
  Receipt Date: 20150123
  Transmission Date: 20150721
  Serious: No
  Sender: FDA-Public Use
  Company Number: US-GLAXOSMITHKLINE-US2014GSK048042

PATIENT
  Age: 5 Year
  Sex: Male

DRUGS (1)
  1. FLOVENT [Suspect]
     Active Substance: FLUTICASONE PROPIONATE
     Indication: ASTHMA
     Dosage: UNK
     Route: 055
     Dates: start: 20141104, end: 20141109

REACTIONS (3)
  - Blepharospasm [Recovering/Resolving]
  - Pruritus [Recovered/Resolved]
  - Excessive eye blinking [Recovering/Resolving]

NARRATIVE: CASE EVENT DATE: 20141107
